FAERS Safety Report 14681951 (Version 5)
Quarter: 2018Q2

REPORT INFORMATION
  Report Type: Spontaneous
  Country: US (occurrence: US)
  Receive Date: 20180326
  Receipt Date: 20180504
  Transmission Date: 20180711
  Serious: Yes (Other)
  Sender: FDA-Public Use
  Company Number: US-ACTELION-A-NJ2018-169692

PATIENT
  Age: 84 Year
  Sex: Female
  Weight: 89.8 kg

DRUGS (3)
  1. UPTRAVI [Suspect]
     Active Substance: SELEXIPAG
     Indication: PULMONARY ARTERIAL HYPERTENSION
     Dosage: 200 MCG, BID
     Route: 048
  2. OPSUMIT [Suspect]
     Active Substance: MACITENTAN
     Indication: PULMONARY ARTERIAL HYPERTENSION
     Dosage: UNK
     Route: 048
  3. SILDENAFIL CITRATE. [Concomitant]
     Active Substance: SILDENAFIL CITRATE

REACTIONS (9)
  - Dyspnoea [Unknown]
  - Packed red blood cell transfusion [Unknown]
  - Malaise [Unknown]
  - Blood count abnormal [Unknown]
  - Pain in extremity [Unknown]
  - Anaemia [Unknown]
  - Pain [Unknown]
  - Therapy non-responder [Unknown]
  - Decreased appetite [Unknown]
